FAERS Safety Report 6734589-4 (Version None)
Quarter: 2010Q2

REPORT INFORMATION
  Report Type: 
  Country: None (occurrence: None)
  Receive Date: 20100519
  Receipt Date: 20100504
  Transmission Date: 20101027
  Serious: Yes (Death, Hospitalization)
  Sender: FDA-Public Use
  Company Number: KV201000058

PATIENT
  Age: 61 Year
  Sex: Female
  Weight: 63.5 kg

DRUGS (63)
  1. MORPHINE SULFATE [Suspect]
     Indication: PAIN
     Dosage: 60 MG, BID, ORAL
     Route: 048
     Dates: start: 20080630, end: 20080709
  2. MORPHINE SULFATE [Suspect]
     Indication: PAIN
     Dosage: 15 MG Q4H PRM PAIN, ORAL
     Route: 048
     Dates: start: 20080513, end: 20080709
  3. MORPHINE SULFATE [Suspect]
     Indication: PAIN
     Dosage: 10 MG, PRN Q 4 HOURS, ORAL
     Route: 048
     Dates: start: 20080515, end: 20080710
  4. MORPHINE SULFATE (AVINZA ER) [Suspect]
     Indication: PAIN
     Dosage: 30 MG, Q8H, ORAL
     Route: 048
     Dates: start: 20080613, end: 20080630
  5. NEUPOFEN (FILGRASTIM) [Concomitant]
  6. DIAZIDE [Concomitant]
  7. ATENOLOL [Concomitant]
  8. EFFEXOR XR [Concomitant]
  9. CLARITIN [Concomitant]
  10. K-LYTE [Concomitant]
  11. TRAZODONE HCL [Concomitant]
  12. BACTRIM [Concomitant]
  13. PROTONIX [Concomitant]
  14. PHENERGAN [Concomitant]
  15. DILAUDID [Concomitant]
  16. MEGACE [Concomitant]
  17. COMPAZINE [Concomitant]
  18. ALEVE [Concomitant]
  19. DIOVAN [Concomitant]
  20. REGLAN [Concomitant]
  21. GEMZAR [Concomitant]
  22. TOPROL-XL [Concomitant]
  23. MOTRIN [Concomitant]
  24. MOBIC [Concomitant]
  25. ZOLOFT [Concomitant]
  26. LEVAQUIN [Concomitant]
  27. VENTOLIN [Concomitant]
  28. SYMBICORT (BUDESONIDE, FORMOTHEROL FUMARATE) [Concomitant]
  29. DARVOCET [Concomitant]
  30. POTASSIUM CHLORIDE [Concomitant]
  31. MAGNESIUM [Concomitant]
  32. OXYGEN [Concomitant]
  33. XANAX [Concomitant]
  34. TYLENOL [Concomitant]
  35. BISACODYL [Concomitant]
  36. FLUOROURACIL [Concomitant]
  37. ALBUTEROL [Concomitant]
  38. LEUCOVORIN CALCIUM [Concomitant]
  39. ZOFRAN [Concomitant]
  40. DECADRON [Concomitant]
  41. ANZEMET [Concomitant]
  42. ARANESP [Concomitant]
  43. SUDAFED 12 HOUR [Concomitant]
  44. PREDNISONE TAB [Concomitant]
  45. VOCODIN (HYDROCODONE BITARTRATE, PARACETAMOL) [Concomitant]
  46. MORPHINE [Concomitant]
  47. ATIVAN [Concomitant]
  48. LOVENOX [Concomitant]
  49. TORADOL [Concomitant]
  50. COUMADIN [Concomitant]
  51. DEMEROL [Concomitant]
  52. VERSED [Concomitant]
  53. CEFOTETAN [Concomitant]
  54. ENALAPRIL MALEATE [Concomitant]
  55. HEPARIN [Concomitant]
  56. HYDROMORPHONE HCL [Concomitant]
  57. NALOXONE [Concomitant]
  58. LOPRESSOR [Concomitant]
  59. SANDOSTATIN [Concomitant]
  60. DIPHENHYDRAMINE [Concomitant]
  61. PERCOCET [Concomitant]
  62. HALDOL [Concomitant]
  63. FENTANYL [Concomitant]

REACTIONS (60)
  - ABDOMINAL PAIN UPPER [None]
  - ACUTE PRERENAL FAILURE [None]
  - ANAEMIA [None]
  - ANXIETY [None]
  - ASTHENIA [None]
  - BACK PAIN [None]
  - BRONCHITIS [None]
  - CHEST DISCOMFORT [None]
  - CHOLECYSTITIS ACUTE [None]
  - DECREASED APPETITE [None]
  - DEHYDRATION [None]
  - DEPRESSION [None]
  - DIARRHOEA [None]
  - DRUG INEFFECTIVE [None]
  - DYSPNOEA [None]
  - FACE OEDEMA [None]
  - FATIGUE [None]
  - FEELING HOT [None]
  - GASTROOESOPHAGEAL REFLUX DISEASE [None]
  - HAEMATURIA [None]
  - HEADACHE [None]
  - HYPERCHLORAEMIA [None]
  - HYPERTENSION [None]
  - HYPOKALAEMIA [None]
  - HYPOMAGNESAEMIA [None]
  - HYPOTENSION [None]
  - HYPOXIA [None]
  - INCREASED UPPER AIRWAY SECRETION [None]
  - INSOMNIA [None]
  - JAUNDICE CHOLESTATIC [None]
  - LETHARGY [None]
  - LIVER FUNCTION TEST ABNORMAL [None]
  - MEDICATION ERROR [None]
  - MEMORY IMPAIRMENT [None]
  - METASTASES TO LUNG [None]
  - METASTASES TO LYMPH NODES [None]
  - MUSCLE SPASMS [None]
  - MUSCULAR WEAKNESS [None]
  - NASOPHARYNGITIS [None]
  - NAUSEA [None]
  - NECK PAIN [None]
  - NERVOUSNESS [None]
  - OEDEMA PERIPHERAL [None]
  - ORTHOPNOEA [None]
  - OSTEOARTHRITIS [None]
  - PAIN IN EXTREMITY [None]
  - PANCREATIC CARCINOMA [None]
  - PANCREATITIS ACUTE [None]
  - PLEURAL EFFUSION [None]
  - PRODUCTIVE COUGH [None]
  - PRURITUS [None]
  - PULMONARY CONGESTION [None]
  - PYREXIA [None]
  - RESPIRATORY DISTRESS [None]
  - TREMOR [None]
  - UNRESPONSIVE TO STIMULI [None]
  - URINARY TRACT INFECTION [None]
  - VOMITING [None]
  - WEIGHT DECREASED [None]
  - WHEEZING [None]
